FAERS Safety Report 9796494 (Version 2)
Quarter: 2014Q1

REPORT INFORMATION
  Report Type: Spontaneous
  Country: FR (occurrence: FR)
  Receive Date: 20140103
  Receipt Date: 20140128
  Transmission Date: 20141002
  Serious: Yes (Hospitalization)
  Sender: FDA-Public Use
  Company Number: FR-GLAXOSMITHKLINE-B0955757A

PATIENT
  Age: 50 Year
  Sex: Female

DRUGS (2)
  1. TYVERB [Suspect]
     Indication: BREAST CANCER METASTATIC
     Route: 048
     Dates: start: 20131030, end: 20131123
  2. HERCEPTIN [Concomitant]
     Indication: BREAST CANCER METASTATIC
     Dates: start: 2012

REACTIONS (6)
  - Hypersensitivity vasculitis [Recovering/Resolving]
  - Oedema [Recovering/Resolving]
  - Urticaria [Recovered/Resolved]
  - Skin lesion [Recovered/Resolved]
  - Inflammation [Unknown]
  - Feeling hot [Unknown]
